FAERS Safety Report 4687776-3 (Version None)
Quarter: 2005Q2

REPORT INFORMATION
  Report Type: 
  Country: None (occurrence: None)
  Receive Date: 20050610
  Receipt Date: 20050310
  Transmission Date: 20051028
  Serious: Yes (Hospitalization, Disabling, Other)
  Sender: FDA-Public Use
  Company Number: US-MERCK-0503USA02354

PATIENT
  Age: 52 Year
  Sex: Female
  Weight: 91 kg

DRUGS (34)
  1. VIOXX [Suspect]
     Indication: POLYARTHRITIS
     Route: 048
     Dates: start: 20010614, end: 20020101
  2. VIOXX [Suspect]
     Route: 048
     Dates: start: 20010614, end: 20020101
  3. VIOXX [Suspect]
     Route: 048
     Dates: start: 20020624, end: 20030515
  4. VIOXX [Suspect]
     Route: 048
     Dates: start: 20020624, end: 20030515
  5. VIOXX [Suspect]
     Route: 048
     Dates: start: 20020624, end: 20030515
  6. VIOXX [Suspect]
     Route: 048
     Dates: start: 20010614, end: 20020101
  7. VIOXX [Suspect]
     Route: 048
     Dates: start: 20020624, end: 20030515
  8. VIOXX [Suspect]
     Route: 048
     Dates: start: 20010614, end: 20020101
  9. VIOXX [Suspect]
     Route: 048
     Dates: start: 20031001, end: 20041001
  10. VIOXX [Suspect]
     Indication: OSTEOARTHRITIS
     Route: 048
     Dates: start: 20010614, end: 20020101
  11. VIOXX [Suspect]
     Route: 048
     Dates: start: 20020624, end: 20030515
  12. VIOXX [Suspect]
     Route: 048
     Dates: start: 20010614, end: 20020101
  13. VIOXX [Suspect]
     Route: 048
     Dates: start: 20010614, end: 20020101
  14. VIOXX [Suspect]
     Route: 048
     Dates: start: 20010614, end: 20020101
  15. VIOXX [Suspect]
     Route: 048
     Dates: start: 20020624, end: 20030515
  16. VIOXX [Suspect]
     Route: 048
     Dates: start: 20020624, end: 20030515
  17. VIOXX [Suspect]
     Route: 048
     Dates: start: 20020624, end: 20030515
  18. VIOXX [Suspect]
     Route: 048
     Dates: start: 20031001, end: 20041001
  19. LOTREL [Concomitant]
     Route: 065
     Dates: start: 20010901
  20. ASPIRIN [Concomitant]
     Route: 065
     Dates: start: 20031201
  21. NAPROXEN [Concomitant]
     Route: 065
     Dates: start: 20030101, end: 20030101
  22. NAPROXEN [Concomitant]
     Route: 065
     Dates: start: 20041001
  23. PREMPRO (PREMARIN;CYCRIN 14/14) [Concomitant]
     Route: 065
     Dates: start: 19990101, end: 20030101
  24. PROZAC [Concomitant]
     Route: 065
     Dates: start: 19980101
  25. FLUOXETINE [Concomitant]
     Route: 065
     Dates: start: 20021201
  26. TEMAZEPAM [Concomitant]
     Route: 065
     Dates: start: 20030101, end: 20040101
  27. FLURAZEPAM [Concomitant]
     Route: 065
     Dates: start: 20030101
  28. NEXIUM [Concomitant]
     Route: 065
  29. LANTUS [Concomitant]
     Route: 065
  30. GLUCOVANCE [Concomitant]
     Route: 065
  31. DETROL [Concomitant]
     Route: 065
  32. LITHIUM CARBONATE [Concomitant]
     Route: 065
     Dates: start: 20030301, end: 20040501
  33. ADVAIR DISKUS 100/50 [Concomitant]
     Route: 065
  34. ALBUTEROL [Concomitant]
     Route: 065

REACTIONS (30)
  - ABDOMINAL PAIN [None]
  - AMNESIA [None]
  - BLOOD PRESSURE INCREASED [None]
  - BLOOD TRIGLYCERIDES INCREASED [None]
  - CEREBROVASCULAR ACCIDENT [None]
  - CONSTIPATION [None]
  - CORONARY ARTERY DISEASE [None]
  - DEPRESSION [None]
  - DRUG HYPERSENSITIVITY [None]
  - DRUG INTOLERANCE [None]
  - EMOTIONAL DISTRESS [None]
  - FATIGUE [None]
  - HILAR LYMPHADENOPATHY [None]
  - HYPERLIPIDAEMIA [None]
  - HYPERTENSION [None]
  - INFECTION [None]
  - INFLAMMATION [None]
  - LYMPHADENOPATHY [None]
  - LYMPHADENOPATHY MEDIASTINAL [None]
  - NECK PAIN [None]
  - OTITIS MEDIA [None]
  - OVERDOSE [None]
  - PAIN IN EXTREMITY [None]
  - PNEUMONIA [None]
  - PROTEINURIA [None]
  - PULMONARY EMBOLISM [None]
  - TENDON CALCIFICATION [None]
  - TENDONITIS [None]
  - URINARY INCONTINENCE [None]
  - URINE ANALYSIS ABNORMAL [None]
